FAERS Safety Report 6599689-0 (Version None)
Quarter: 2010Q1

REPORT INFORMATION
  Report Type: 
  Country: None (occurrence: None)
  Receive Date: 20100224
  Receipt Date: 20100219
  Transmission Date: 20100710
  Serious: Yes (Other)
  Sender: FDA-Public Use
  Company Number: GB-TEVA-225067ISR

PATIENT
  Age: 65 Year
  Sex: Male

DRUGS (1)
  1. ERYTHROMYCIN [Suspect]
     Indication: WOUND INFECTION
     Route: 048
     Dates: start: 20100208, end: 20100211

REACTIONS (1)
  - VISUAL ACUITY REDUCED [None]
